FAERS Safety Report 17160661 (Version 1)
Quarter: 2019Q4

REPORT INFORMATION
  Report Type: Spontaneous
  Country: NL (occurrence: IT)
  Receive Date: 20191216
  Receipt Date: 20191216
  Transmission Date: 20200122
  Serious: Yes (Disabling)
  Sender: FDA-Public Use
  Company Number: IT-BAYER-2019-220649

PATIENT
  Age: 25 Year
  Sex: Male
  Weight: 62 kg

DRUGS (3)
  1. UNIDROX [Suspect]
     Active Substance: PRULIFLOXACIN
     Indication: CYSTITIS
     Dosage: 600 MG, QD
     Route: 048
     Dates: start: 20170920, end: 20170925
  2. CIPROXIN 500 MG [Suspect]
     Active Substance: CIPROFLOXACIN
     Indication: PROSTATITIS
     Dosage: 500 MG, QD
     Route: 048
     Dates: start: 20171120, end: 20171125
  3. LEVOFLOXACIN. [Suspect]
     Active Substance: LEVOFLOXACIN
     Indication: CYSTITIS
     Dosage: 500 MG, QD
     Route: 048
     Dates: start: 20171120, end: 20171125

REACTIONS (7)
  - Tendonitis [Not Recovered/Not Resolved]
  - Chondropathy [Not Recovered/Not Resolved]
  - Dysbiosis [Not Recovered/Not Resolved]
  - Arthritis [Not Recovered/Not Resolved]
  - Myalgia [Not Recovered/Not Resolved]
  - Neuritis [Not Recovered/Not Resolved]
  - Bone pain [Not Recovered/Not Resolved]

NARRATIVE: CASE EVENT DATE: 20171120
